FAERS Safety Report 22339190 (Version 2)
Quarter: 2023Q2

REPORT INFORMATION
  Report Type: Report from Study
  Country: IT (occurrence: IT)
  Receive Date: 20230518
  Receipt Date: 20230530
  Transmission Date: 20230721
  Serious: Yes (Hospitalization)
  Sender: FDA-Public Use
  Company Number: None

PATIENT
  Sex: Female

DRUGS (4)
  1. TAVOR (LORAZEPAM) [Suspect]
     Active Substance: LORAZEPAM
     Dosage: 100 MG
     Dates: start: 20230324
  2. COUMADIN [Suspect]
     Active Substance: WARFARIN SODIUM
     Dosage: 200 MG
     Dates: start: 20230324
  3. RAMIPRIL [Concomitant]
     Active Substance: RAMIPRIL
  4. PLAVIX [Concomitant]
     Active Substance: CLOPIDOGREL BISULFATE

REACTIONS (3)
  - Drug abuse [Recovering/Resolving]
  - Suicidal behaviour [Recovering/Resolving]
  - Sopor [Recovering/Resolving]

NARRATIVE: CASE EVENT DATE: 20230324
